FAERS Safety Report 5033784-2 (Version None)
Quarter: 2006Q2

REPORT INFORMATION
  Report Type: 
  Country: None (occurrence: None)
  Receive Date: 20060620
  Receipt Date: 20060607
  Transmission Date: 20061013
  Serious: Yes (Other)
  Sender: FDA-Public Use
  Company Number: 226142

PATIENT
  Age: 87 Year
  Sex: Female

DRUGS (11)
  1. MABTHERA(RITUXIMAB) CONC FOR SOLUTION FOR INFUSION [Suspect]
     Indication: LYMPHOMA
  2. CYCLOPHOSPHAMIDE [Concomitant]
  3. DOXORUBICIN HCL [Concomitant]
  4. VINCRISTINE [Concomitant]
  5. PREDNISOLONE [Concomitant]
  6. CORDARAONE (AMIODARONE HYDROCHLORIDE) [Concomitant]
  7. LASIX [Concomitant]
  8. LEVOTHYROXINE SODIUM [Concomitant]
  9. COZAAR [Concomitant]
  10. KARDEGIC (ASPIRIN DL-LYSINE) [Concomitant]
  11. LEXOMIL (BROMAZEPAM) [Concomitant]

REACTIONS (2)
  - CYTOLYTIC HEPATITIS [None]
  - RENAL FAILURE [None]
